FAERS Safety Report 4854050-1 (Version None)
Quarter: 2005Q4

REPORT INFORMATION
  Report Type: 
  Country: None (occurrence: None)
  Receive Date: 20051214
  Receipt Date: 20051005
  Transmission Date: 20060501
  Serious: Yes (Death, Hospitalization)
  Sender: FDA-Public Use
  Company Number: US-MERCK-0510USA04511

PATIENT
  Age: 69 Year
  Sex: Female
  Weight: 107 kg

DRUGS (20)
  1. VIOXX [Suspect]
     Indication: RHEUMATOID ARTHRITIS
     Route: 048
     Dates: start: 20020627, end: 20031112
  2. PREDNISONE [Concomitant]
     Route: 065
  3. LASIX [Concomitant]
     Route: 065
  4. PLAQUENIL [Concomitant]
     Route: 065
  5. SEREVENT [Concomitant]
     Route: 065
  6. PULMICORT [Concomitant]
     Route: 065
  7. ALBUTEROL [Concomitant]
     Route: 065
  8. LEVOXYL [Concomitant]
     Route: 065
  9. FOSAMAX [Concomitant]
     Route: 048
  10. ALLEGRA [Concomitant]
     Route: 065
  11. PRILOSEC [Concomitant]
     Route: 065
  12. POTASSIUM CHLORIDE [Concomitant]
     Route: 065
  13. SALAGEN [Concomitant]
     Route: 048
  14. FOLIC ACID [Concomitant]
     Route: 065
  15. OS-CAL [Concomitant]
     Route: 065
  16. CHONDROITIN SULFATE SODIUM AND GLUCOSAMINE HYDROCHLORIDE [Concomitant]
     Route: 065
  17. VITAMIN E [Concomitant]
     Route: 065
  18. CENTRUM SILVER [Concomitant]
     Route: 065
  19. IRON (UNSPECIFIED) [Concomitant]
     Route: 065
  20. ZETIA [Concomitant]
     Route: 048

REACTIONS (29)
  - ASTHMA [None]
  - BLOOD CHOLESTEROL INCREASED [None]
  - BLOOD PRESSURE INCREASED [None]
  - CARDIAC ARREST [None]
  - CARDIAC FAILURE CONGESTIVE [None]
  - CARDIOGENIC SHOCK [None]
  - CARDIOVASCULAR DISORDER [None]
  - CHEST PAIN [None]
  - CORONARY ARTERY DISEASE [None]
  - COUGH [None]
  - DEPRESSION [None]
  - DRUG HYPERSENSITIVITY [None]
  - DYSPNOEA [None]
  - GASTROOESOPHAGEAL REFLUX DISEASE [None]
  - GENERALISED OEDEMA [None]
  - HAEMATOCRIT DECREASED [None]
  - HAEMOLYTIC ANAEMIA [None]
  - HYPOTHYROIDISM [None]
  - INCREASED UPPER AIRWAY SECRETION [None]
  - MYOCARDIAL INFARCTION [None]
  - NIGHT SWEATS [None]
  - PNEUMONIA [None]
  - RASH [None]
  - RESTRICTIVE PULMONARY DISEASE [None]
  - RHEUMATOID LUNG [None]
  - RIB FRACTURE [None]
  - SEASONAL ALLERGY [None]
  - SLEEP APNOEA SYNDROME [None]
  - WHEEZING [None]
